FAERS Safety Report 8087002-1 (Version None)
Quarter: 2012Q1

REPORT INFORMATION
  Report Type: 
  Country: None (occurrence: None)
  Receive Date: 20120128
  Receipt Date: 20110521
  Transmission Date: 20120608
  Serious: No
  Sender: FDA-Public Use
  Company Number: US-ABBOTT-11P-163-0727612-00

PATIENT
  Age: 58 Year
  Sex: Female

DRUGS (1)
  1. HUMIRA [Suspect]
     Indication: RHEUMATOID ARTHRITIS
     Dates: start: 20110224, end: 20110425

REACTIONS (8)
  - HYPOAESTHESIA [None]
  - JOINT SWELLING [None]
  - CHEST PAIN [None]
  - OROPHARYNGEAL PAIN [None]
  - TONGUE DISORDER [None]
  - RASH [None]
  - SWEATING FEVER [None]
  - GLOSSODYNIA [None]
